FAERS Safety Report 18381344 (Version 1)
Quarter: 2020Q4

REPORT INFORMATION
  Report Type: Spontaneous
  Country: CA (occurrence: CA)
  Receive Date: 20201014
  Receipt Date: 20201014
  Transmission Date: 20210114
  Serious: Yes (Hospitalization, Other)
  Sender: FDA-Public Use
  Company Number: CA-ACCORD-204676

PATIENT
  Age: 44 Year
  Sex: Male

DRUGS (15)
  1. KETAMINE [Interacting]
     Active Substance: KETAMINE
     Indication: NEURALGIA
     Dosage: HIGH DOSE, 30 HR OVER FIVE DAYS; 8:00 AM TO 2:00 PM EACH DAY
     Route: 042
  2. TEMAZEPAM. [Suspect]
     Active Substance: TEMAZEPAM
     Indication: NEURALGIA
  3. MAGNESIUM SULFATE. [Concomitant]
     Active Substance: MAGNESIUM SULFATE
     Indication: ANALGESIC THERAPY
     Dosage: BOLUS
  4. LIDOCAINE. [Concomitant]
     Active Substance: LIDOCAINE
     Indication: ANALGESIC THERAPY
     Dosage: BOLUS
  5. DEXAMETHASONE. [Concomitant]
     Active Substance: DEXAMETHASONE
     Indication: PROPHYLAXIS
     Route: 042
  6. ZOPICLONE [Suspect]
     Active Substance: ZOPICLONE
     Indication: NEURALGIA
  7. ONDANSETRON [Concomitant]
     Active Substance: ONDANSETRON
     Indication: PROPHYLAXIS
     Route: 042
  8. DRONABINOL. [Interacting]
     Active Substance: DRONABINOL
     Indication: ANALGESIC THERAPY
     Dosage: VAPORIZED THC USE (TWO-THREE TIMES HIS USUAL DOSE)
  9. AMITRIPTYLINE [Suspect]
     Active Substance: AMITRIPTYLINE
     Indication: NEURALGIA
  10. DRONABINOL. [Interacting]
     Active Substance: DRONABINOL
     Indication: ANALGESIC THERAPY
  11. DULOXETINE. [Suspect]
     Active Substance: DULOXETINE
     Indication: NEURALGIA
  12. KETAMINE [Interacting]
     Active Substance: KETAMINE
     Indication: NEURALGIA
     Dosage: HIGH DOSE, 30 HR OVER FIVE DAYS; 8:00 AM TO 2:00 PM EACH DAY
     Route: 040
  13. CANNABIDIOL [Interacting]
     Active Substance: CANNABIDIOL
     Indication: NEURALGIA
     Dosage: VAPORIZED OIL
  14. MIDAZOLAM. [Suspect]
     Active Substance: MIDAZOLAM
     Indication: PROPHYLAXIS
     Route: 042
  15. KETAMINE [Interacting]
     Active Substance: KETAMINE
     Indication: NEURALGIA
     Dosage: HIGH DOSE, 30 HR OVER FIVE DAYS; 8:00 AM TO 2:00 PM EACH DAY
     Route: 042

REACTIONS (3)
  - Drug level increased [Recovered/Resolved]
  - Behaviour disorder [Recovered/Resolved]
  - Drug interaction [Unknown]
